FAERS Safety Report 4555569-3 (Version None)
Quarter: 2005Q1

REPORT INFORMATION
  Report Type: 
  Country: None (occurrence: None)
  Receive Date: 20041228
  Receipt Date: 20040329
  Transmission Date: 20050727
  Serious: Yes (Other)
  Sender: FDA-Public Use
  Company Number: PHEH2004US03635

PATIENT
  Age: 62 Year
  Sex: Female

DRUGS (6)
  1. AREDIA [Suspect]
     Indication: BREAST CANCER
     Dosage: 90 MG, QMO
     Dates: start: 19990101, end: 20010101
  2. ZOMETA [Suspect]
     Indication: BREAST CANCER
     Dosage: 4 MG, QMO
     Dates: start: 20010101, end: 20030101
  3. DARVOCET (DEXTROPROPOXYPHENE NAPSILATE) [Concomitant]
  4. VICODIN [Concomitant]
  5. PLAQUENIL [Concomitant]
  6. PREDNISONE [Concomitant]

REACTIONS (4)
  - ASEPTIC NECROSIS BONE [None]
  - BONE DISORDER [None]
  - PAIN [None]
  - WOUND DRAINAGE [None]
